FAERS Safety Report 4808217-9 (Version None)
Quarter: 2005Q4

REPORT INFORMATION
  Report Type: 
  Country: None (occurrence: None)
  Receive Date: 20051025
  Receipt Date: 20050218
  Transmission Date: 20060501
  Serious: Yes (Hospitalization)
  Sender: FDA-Public Use
  Company Number: AT-BOEHRINGER INGELHEIM PHARMACEUTICALS, INC.-2005-BE-00013BE

PATIENT
  Sex: Male
  Weight: 73 kg

DRUGS (6)
  1. TIPRANAVIR + RITONAVIR CO-ADMIN [Suspect]
     Indication: HIV INFECTION
     Dosage: TIP: 250MG 3-0-3; RIT: 100MG 2-0-2
     Route: 048
     Dates: start: 20040923, end: 20050228
  2. TIPRANAVIR + RITONAVIR CO-ADMIN [Suspect]
     Dosage: TIP: 250MG 2-0-2; RIT: 100MG 2-0-2
     Route: 048
     Dates: start: 20050301
  3. ACYCLOVIR [Concomitant]
     Indication: OPPORTUNISTIC INFECTION
     Dosage: 0-1-0
     Dates: start: 19980902
  4. SULFAMETHOXAZOLE + TRIMETHOPRIM [Concomitant]
     Indication: OPPORTUNISTIC INFECTION
     Dosage: 800/160   0-1-0
     Route: 048
     Dates: start: 19980902
  5. MIRTAZAPINE [Concomitant]
     Indication: DEPRESSION
     Dosage: 0-0-0-1
     Dates: start: 20001109
  6. GABAPENTIN [Concomitant]
     Indication: EPILEPSY
     Dosage: 1-0-0-1
     Route: 048
     Dates: start: 19990901

REACTIONS (3)
  - GAMMA-GLUTAMYLTRANSFERASE INCREASED [None]
  - GENERAL PHYSICAL HEALTH DETERIORATION [None]
  - HEPATIC ENZYME INCREASED [None]
